FAERS Safety Report 22399754 (Version 1)
Quarter: 2023Q2

REPORT INFORMATION
  Report Type: Report from Study
  Country: US (occurrence: US)
  Receive Date: 20230602
  Receipt Date: 20230602
  Transmission Date: 20230722
  Serious: No
  Sender: FDA-Public Use
  Company Number: US-INCYTE CORPORATION-2023IN004323

PATIENT

DRUGS (1)
  1. JAKAFI [Suspect]
     Active Substance: RUXOLITINIB
     Indication: Graft versus host disease
     Dosage: 10 MILLIGRAM, BID
     Route: 065
     Dates: start: 20230422

REACTIONS (3)
  - Feeling abnormal [Unknown]
  - Vertigo [Unknown]
  - Asthenia [Unknown]

NARRATIVE: CASE EVENT DATE: 20230401
